FAERS Safety Report 7623538 (Version 3)
Quarter: 2013Q3

REPORT INFORMATION
  Report Type: Spontaneous
  Country: US (occurrence: US)
  Receive Date: 20101011
  Receipt Date: 20130927
  Transmission Date: 20140515
  Serious: Yes (Other)
  Sender: FDA-Public Use
  Company Number: US-ROCHE-683620

PATIENT
  Age: 25 Year
  Sex: Female
  Weight: 39.5 kg

DRUGS (2)
  1. ACCUTANE [Suspect]
     Indication: ACNE
     Dosage: STRENGTH: 40 MG AND 20 MG
     Route: 048
     Dates: start: 19980130, end: 199802
  2. ACCUTANE [Suspect]
     Route: 048
     Dates: start: 20010425, end: 20010824

REACTIONS (6)
  - Crohn^s disease [Unknown]
  - Inflammatory bowel disease [Unknown]
  - Intestinal haemorrhage [Unknown]
  - Anal fissure [Unknown]
  - Oral herpes [Unknown]
  - Osteoporosis [Unknown]
